FAERS Safety Report 11327702 (Version 1)
Quarter: 2015Q3

REPORT INFORMATION
  Report Type: Report from Study
  Country: TN (occurrence: TN)
  Receive Date: 20150731
  Receipt Date: 20150731
  Transmission Date: 20151125
  Serious: Yes (Death, Other)
  Sender: FDA-Public Use
  Company Number: TN-BAYER-2015-387952

PATIENT
  Age: 65 Year
  Sex: Female

DRUGS (1)
  1. KETOPROFEN. [Suspect]
     Active Substance: KETOPROFEN

REACTIONS (4)
  - Cardiogenic shock [Fatal]
  - Multi-organ failure [Fatal]
  - Metabolic acidosis [Fatal]
  - Toxic epidermal necrolysis [None]
